FAERS Safety Report 13722356 (Version 1)
Quarter: 2017Q3

REPORT INFORMATION
  Report Type: Spontaneous
  Country: IT (occurrence: IT)
  Receive Date: 20170706
  Receipt Date: 20170706
  Transmission Date: 20171127
  Serious: Yes (Death)
  Sender: FDA-Public Use
  Company Number: IT-BAYER-2017-129001

PATIENT
  Age: 92 Year
  Sex: Female

DRUGS (15)
  1. DEXAMETHASONE W/TOBRAMYCIN [Concomitant]
     Dosage: UNK
  2. TRIATEC [Concomitant]
     Active Substance: RAMIPRIL
     Dosage: UNK
  3. SERACTIL [Concomitant]
     Active Substance: DEXIBUPROFEN
     Dosage: UNK
  4. COLECALCIFEROL [Concomitant]
     Active Substance: CHOLECALCIFEROL
     Dosage: UNK
  5. RISPERIDONE. [Concomitant]
     Active Substance: RISPERIDONE
     Dosage: UNK
  6. PEPTAZOL [Concomitant]
     Active Substance: PANTOPRAZOLE SODIUM
     Dosage: UNK
  7. MONURIL [Concomitant]
     Active Substance: FOSFOMYCIN SODIUM
     Dosage: UNK
  8. FOLINA [Concomitant]
     Active Substance: FOLIC ACID
     Dosage: UNK
  9. CARDIOASPIRIN 100 MG [Suspect]
     Active Substance: ASPIRIN
     Dosage: 100 MG, QD
     Route: 048
     Dates: start: 20160101, end: 20160917
  10. CLEXANE [Suspect]
     Active Substance: ENOXAPARIN SODIUM
     Dosage: UNK
     Route: 058
  11. REMERON [Concomitant]
     Active Substance: MIRTAZAPINE
     Dosage: UNK
  12. CIPROXIN [Concomitant]
     Active Substance: CIPROFLOXACIN
     Dosage: UNK
  13. TRITTICO [Concomitant]
     Active Substance: TRAZODONE HYDROCHLORIDE
     Dosage: UNK
  14. FERROGRAD C [FERROUS SULFATE,SODIUM ASCORBATE] [Concomitant]
     Dosage: UNK
  15. LACTULOSE. [Concomitant]
     Active Substance: LACTULOSE
     Dosage: UNK

REACTIONS (1)
  - Cerebral haemorrhage [Fatal]

NARRATIVE: CASE EVENT DATE: 20160917
